FAERS Safety Report 8205022-0 (Version None)
Quarter: 2012Q1

REPORT INFORMATION
  Report Type: 
  Country: None (occurrence: None)
  Receive Date: 20120313
  Receipt Date: 20120302
  Transmission Date: 20120608
  Serious: Yes (Hospitalization, Other)
  Sender: FDA-Public Use
  Company Number: JP-TEVA-2011004805

PATIENT
  Sex: Female
  Weight: 52.8 kg

DRUGS (21)
  1. SENNA LEAF [Concomitant]
     Dates: end: 20110124
  2. ACYCLOVIR [Suspect]
  3. BROTIZOLAM [Concomitant]
  4. ACETAMINOPHEN [Concomitant]
     Dates: end: 20110118
  5. GRANISETRON HCL [Concomitant]
     Dates: start: 20110111, end: 20110316
  6. BENFOTIAMINE [Concomitant]
     Indication: NEUROPATHY PERIPHERAL
     Dates: start: 20110711
  7. FREEZE DRIED SULFONATED HUMAN NORMAL IMMUNOGLOBULIN [Concomitant]
     Indication: HYPOGAMMAGLOBULINAEMIA
     Dates: start: 20110825, end: 20110828
  8. BENDAMUSTINE [Suspect]
     Indication: B-CELL LYMPHOMA
     Dosage: 90 MG/M2;
     Route: 042
     Dates: start: 20110524, end: 20110525
  9. POVIDONE IODINE [Concomitant]
     Dates: end: 20110214
  10. BENDAMUSTINE [Suspect]
     Dosage: 90 MG/M2;
     Route: 042
     Dates: start: 20110202, end: 20110203
  11. HEPARIN SODIUM [Concomitant]
  12. SULFAMETHOXAZOLE AND TRIMETHOPRIM [Concomitant]
     Dates: start: 20110111, end: 20110510
  13. LEVOFLOXACIN [Concomitant]
     Dates: end: 20110118
  14. BENDAMUSTINE [Suspect]
     Dosage: 90 MG/M2;
     Route: 042
     Dates: start: 20110111, end: 20110112
  15. RITUXIMAB [Suspect]
     Dosage: 500 MILLIGRAM;
     Route: 042
     Dates: start: 20110826, end: 20110826
  16. TEPRENONE [Concomitant]
  17. BENDAMUSTINE [Suspect]
     Dosage: 90 MG/M2;
     Route: 042
     Dates: start: 20110829, end: 20110830
  18. BENDAMUSTINE [Suspect]
     Dosage: 90 MG/M2;
     Route: 042
     Dates: start: 20110315, end: 20110316
  19. RITUXIMAB [Suspect]
     Indication: B-CELL LYMPHOMA
     Dosage: 500 MILLIGRAM;
     Route: 042
     Dates: start: 20110527, end: 20110527
  20. MAGNESIUM OXIDE [Concomitant]
     Indication: CONSTIPATION
     Dosage: 990 MILLIGRAM;
     Dates: start: 20110606
  21. FREEZE DRIED SULFONATED HUMAN NORMAL IMMUNOGLOBULIN [Concomitant]
     Indication: PROPHYLAXIS

REACTIONS (4)
  - WHITE BLOOD CELL COUNT DECREASED [None]
  - ANGIOPATHY [None]
  - NEUTROPHIL COUNT DECREASED [None]
  - LYMPHOCYTE COUNT DECREASED [None]
